FAERS Safety Report 10196785 (Version 1)
Quarter: 2014Q2

REPORT INFORMATION
  Report Type: Spontaneous
  Country: JP (occurrence: JP)
  Receive Date: 20140527
  Receipt Date: 20140527
  Transmission Date: 20141212
  Serious: Yes (Hospitalization)
  Sender: FDA-Public Use
  Company Number: JP-BAYER-2014-073947

PATIENT
  Age: 70 Year
  Sex: Male

DRUGS (8)
  1. ACETYLSALICYLIC ACID({=100 MG) [Suspect]
     Indication: ANGINA PECTORIS
     Route: 048
  2. CLOPIDOGREL SULFATE [Suspect]
     Indication: ANGINA PECTORIS
     Dosage: DAILY DOSE 75 MG
     Route: 048
  3. LANSOPRAZOLE [Suspect]
     Indication: ANGINA PECTORIS
     Route: 048
  4. THIAMINE DISULFIDE [Concomitant]
     Route: 065
  5. ADENOSINE TRIPHOSPHATE [Concomitant]
     Route: 065
  6. LORAZEPAM [Concomitant]
     Route: 065
  7. LIMAPROST [Concomitant]
     Route: 065
  8. METHYLPREDNISOLONE [Concomitant]
     Route: 065

REACTIONS (1)
  - Acquired haemophilia [None]
